FAERS Safety Report 15653653 (Version 4)
Quarter: 2018Q4

REPORT INFORMATION
  Report Type: Report from Study
  Country: RS (occurrence: RS)
  Receive Date: 20181124
  Receipt Date: 20181207
  Transmission Date: 20190205
  Serious: Yes (Death, Life-Threatening, Hospitalization, Other)
  Sender: FDA-Public Use
  Company Number: RS-B.I. PHARMACEUTICALS,INC./RIDGEFIELD-2018-BI-056518

PATIENT
  Age: 71 Year
  Sex: Female

DRUGS (4)
  1. PRADAXA [Suspect]
     Active Substance: DABIGATRAN ETEXILATE MESYLATE
     Indication: ATRIAL FIBRILLATION
     Route: 048
     Dates: start: 2016, end: 20181118
  2. STATIN [Concomitant]
     Active Substance: UNSPECIFIED INGREDIENT
     Indication: PRODUCT USED FOR UNKNOWN INDICATION
     Route: 065
  3. DIGITALIS [Concomitant]
     Active Substance: DIGITALIS
     Indication: PRODUCT USED FOR UNKNOWN INDICATION
     Route: 002
  4. GLICLAZIDEC [Concomitant]
     Indication: PRODUCT USED FOR UNKNOWN INDICATION
     Route: 065

REACTIONS (13)
  - Melaena [Recovering/Resolving]
  - Rectal haemorrhage [Recovered/Resolved]
  - Haematochezia [Unknown]
  - Respiratory failure [Fatal]
  - Hepatic cancer [Unknown]
  - Expired product administered [Unknown]
  - Haematemesis [Recovering/Resolving]
  - Acute kidney injury [Recovering/Resolving]
  - Diarrhoea [Recovering/Resolving]
  - Haematoma [Unknown]
  - Lung neoplasm malignant [Fatal]
  - Overdose [Unknown]
  - Hypotension [Recovering/Resolving]

NARRATIVE: CASE EVENT DATE: 20181118
